FAERS Safety Report 14484054 (Version 1)
Quarter: 2018Q1

REPORT INFORMATION
  Report Type: Report from Study
  Country: CA (occurrence: CA)
  Receive Date: 20180205
  Receipt Date: 20180205
  Transmission Date: 20180509
  Serious: Yes (Other)
  Sender: FDA-Public Use
  Company Number: CA-ROCHE-2037515

PATIENT
  Sex: Female

DRUGS (4)
  1. ZYKADIA [Concomitant]
     Active Substance: CERITINIB
  2. ALECENSARO [Suspect]
     Active Substance: ALECTINIB
     Indication: NON-SMALL CELL LUNG CANCER
     Route: 048
     Dates: start: 201711, end: 201712
  3. FRAGMIN [Concomitant]
     Active Substance: DALTEPARIN SODIUM
  4. MORPHINE [Concomitant]
     Active Substance: MORPHINE

REACTIONS (2)
  - Anaemia [Unknown]
  - Arthritis [Unknown]
